FAERS Safety Report 21369608 (Version 2)
Quarter: 2022Q4

REPORT INFORMATION
  Report Type: Other
  Country: None (occurrence: GB)
  Receive Date: 20220923
  Receipt Date: 20221018
  Transmission Date: 20230113
  Serious: Yes (Life-Threatening, Hospitalization, Other)
  Sender: FDA-Public Use
  Company Number: GB-Eywa Pharma Inc.-2133101

PATIENT
  Age: 37 Year
  Sex: Male

DRUGS (17)
  1. BACLOFEN [Suspect]
     Active Substance: BACLOFEN
     Indication: Pain
     Route: 065
  2. GABAPENTIN [Interacting]
     Active Substance: GABAPENTIN
     Route: 065
  3. AMITRIPTYLINE HYDROCHLORIDE [Concomitant]
     Active Substance: AMITRIPTYLINE HYDROCHLORIDE
     Route: 065
  4. TRAMADOL [Suspect]
     Active Substance: TRAMADOL
     Route: 065
  5. MIRTAZAPINE [Suspect]
     Active Substance: MIRTAZAPINE
     Route: 065
  6. QUETIAPINE [Concomitant]
     Active Substance: QUETIAPINE
     Route: 065
  7. ZOPICLONE [Concomitant]
     Active Substance: ZOPICLONE
     Route: 065
  8. LIDOCAINE [Concomitant]
     Active Substance: LIDOCAINE
     Route: 065
  9. NAPROXEN [Concomitant]
     Active Substance: NAPROXEN
     Route: 065
  10. MEFENAMIC ACID [Concomitant]
     Active Substance: MEFENAMIC ACID
     Route: 065
  11. PANTOPRAZOLE SODIUM [Concomitant]
     Active Substance: PANTOPRAZOLE SODIUM
     Route: 065
  12. NICOTINE [Concomitant]
     Active Substance: NICOTINE
     Route: 065
  13. CHLORHEXIDINE GLUCONATE [Concomitant]
     Active Substance: CHLORHEXIDINE GLUCONATE
     Route: 065
  14. BUPIVACAINE [Concomitant]
     Active Substance: BUPIVACAINE
     Route: 065
  15. EPINEPHRINE [Concomitant]
     Active Substance: EPINEPHRINE
     Route: 065
  16. ATROPINE [Concomitant]
     Active Substance: ATROPINE
     Route: 042
  17. LEVETIRACETAM [Concomitant]
     Active Substance: LEVETIRACETAM
     Route: 065

REACTIONS (8)
  - Bradycardia [Recovered/Resolved]
  - Pupil fixed [Recovered/Resolved]
  - Hypotension [Recovered/Resolved]
  - Generalised tonic-clonic seizure [Recovered/Resolved]
  - Coma scale abnormal [Recovered/Resolved]
  - Brain stem syndrome [Recovered/Resolved]
  - Drug interaction [Unknown]
  - Overdose [Unknown]
